FAERS Safety Report 23325474 (Version 1)
Quarter: 2023Q4

REPORT INFORMATION
  Report Type: Spontaneous
  Country: US (occurrence: US)
  Receive Date: 20231221
  Receipt Date: 20231221
  Transmission Date: 20240110
  Serious: No
  Sender: FDA-Public Use
  Company Number: US-SA-SAC20231219000914

PATIENT
  Sex: Male
  Weight: 94.34 kg

DRUGS (1)
  1. DUPIXENT [Suspect]
     Active Substance: DUPILUMAB
     Indication: Asthma
     Dosage: DOSE AND ROUTE PRESCRIBED: INJECT 300 MG (1 PEN) FREQUENCY: EVERY 2 WEEKS
     Route: 058

REACTIONS (2)
  - Pain in jaw [Unknown]
  - Infection [Unknown]
